FAERS Safety Report 6018009-3 (Version None)
Quarter: 2008Q4

REPORT INFORMATION
  Report Type: 
  Country: None (occurrence: None)
  Receive Date: 20081223
  Receipt Date: 20081215
  Transmission Date: 20090506
  Serious: Yes (Hospitalization)
  Sender: FDA-Public Use
  Company Number: B0549920A

PATIENT
  Age: 32 Year
  Sex: Male

DRUGS (16)
  1. EPIVIR [Suspect]
     Indication: HIV INFECTION
     Route: 048
     Dates: start: 20080521
  2. KALETRA [Suspect]
     Indication: HIV INFECTION
     Route: 048
     Dates: start: 20080521, end: 20080530
  3. RIFATER [Suspect]
     Route: 048
     Dates: start: 20080523
  4. TRUVADA [Suspect]
     Indication: HIV INFECTION
     Route: 048
     Dates: start: 20080521, end: 20080530
  5. SUSTIVA [Suspect]
     Indication: HIV INFECTION
     Route: 048
     Dates: start: 20080521
  6. BACTRIM [Suspect]
     Indication: PROPHYLAXIS
     Route: 048
     Dates: start: 20080521
  7. MYAMBUTOL [Suspect]
     Route: 048
     Dates: start: 20080523
  8. ROCEPHIN [Suspect]
     Route: 065
     Dates: start: 20080506
  9. NAPROXEN SODIUM [Suspect]
     Dates: start: 20080506
  10. ANTIVITAMINS K [Suspect]
  11. RIMIFON [Concomitant]
     Dosage: 300MG PER DAY
  12. RIFADIN [Concomitant]
     Dosage: 30MG PER DAY
  13. CARDENSIEL [Concomitant]
  14. AMLOD [Concomitant]
     Dosage: 5MG PER DAY
  15. TAZOCILLINE [Concomitant]
  16. ATARAX [Concomitant]

REACTIONS (13)
  - BLOOD CREATININE INCREASED [None]
  - BLOOD TRIGLYCERIDES INCREASED [None]
  - GENERAL PHYSICAL HEALTH DETERIORATION [None]
  - HEPATOSPLENOMEGALY [None]
  - HISTIOCYTOSIS HAEMATOPHAGIC [None]
  - HYPERTENSION [None]
  - IMMUNE RECONSTITUTION SYNDROME [None]
  - NERVOUS SYSTEM DISORDER [None]
  - PANCYTOPENIA [None]
  - PROTEINURIA [None]
  - PYREXIA [None]
  - RENAL FAILURE ACUTE [None]
  - SERUM FERRITIN INCREASED [None]
